FAERS Safety Report 6307486-6 (Version None)
Quarter: 2009Q3

REPORT INFORMATION
  Report Type: 
  Country: None (occurrence: None)
  Receive Date: 20090813
  Receipt Date: 20090804
  Transmission Date: 20100115
  Serious: Yes (Hospitalization)
  Sender: FDA-Public Use
  Company Number: GB-BAYER-200911287BNE

PATIENT
  Age: 69 Year
  Sex: Male
  Weight: 67 kg

DRUGS (13)
  1. SORAFENIB [Suspect]
     Indication: HEADACHE
     Dates: start: 20071005, end: 20081115
  2. SORAFENIB [Suspect]
     Dates: start: 20071116, end: 20080708
  3. SORAFENIB [Suspect]
     Dates: start: 20080708, end: 20080710
  4. SORAFENIB [Suspect]
     Dates: start: 20090409
  5. SORAFENIB [Suspect]
     Dates: start: 20080710, end: 20090406
  6. DICLOFENAC [Concomitant]
     Indication: DRUG USE FOR UNKNOWN INDICATION
  7. PARACETAMOL [Concomitant]
     Indication: DRUG USE FOR UNKNOWN INDICATION
  8. LEVOTHYROXINE SODIUM [Concomitant]
     Indication: DRUG USE FOR UNKNOWN INDICATION
  9. CALCICHEW [Concomitant]
     Indication: DRUG USE FOR UNKNOWN INDICATION
     Dosage: 4 TABLETS
  10. ALFACALCIDOL [Concomitant]
     Indication: DRUG USE FOR UNKNOWN INDICATION
  11. LOPERAMIDE [Concomitant]
     Indication: DRUG USE FOR UNKNOWN INDICATION
     Dates: start: 20080415
  12. AMOXICILLIN [Concomitant]
     Indication: DRUG USE FOR UNKNOWN INDICATION
     Dates: start: 20090104, end: 20090409
  13. ASPIRIN [Concomitant]
     Indication: TACHYCARDIA
     Dates: start: 20090407

REACTIONS (3)
  - HEADACHE [None]
  - HYPERTENSION [None]
  - SUPRAVENTRICULAR TACHYCARDIA [None]
